FAERS Safety Report 5502201-8 (Version None)
Quarter: 2007Q4

REPORT INFORMATION
  Report Type: 
  Country: None (occurrence: None)
  Receive Date: 20071030
  Receipt Date: 20071024
  Transmission Date: 20080405
  Serious: Yes (Hospitalization, Other)
  Sender: FDA-Public Use
  Company Number: US-ASTRAZENECA-2007UW20606

PATIENT
  Age: 465 Month
  Sex: Female
  Weight: 58.2 kg

DRUGS (5)
  1. SEROQUEL [Suspect]
     Indication: ILL-DEFINED DISORDER
     Dosage: 200 - 300 MG
     Route: 048
     Dates: start: 20020101, end: 20050101
  2. RISPERDAL [Concomitant]
  3. NEURONTIN [Concomitant]
  4. EFFEXOR [Concomitant]
  5. WELLBUTRIN [Concomitant]

REACTIONS (4)
  - DIABETES MELLITUS [None]
  - DYSKINESIA [None]
  - SURGERY [None]
  - TARDIVE DYSKINESIA [None]
